FAERS Safety Report 8300434 (Version 44)
Quarter: 2021Q3

REPORT INFORMATION
  Report Type: Report from Study
  Country: CA (occurrence: CA)
  Receive Date: 20111219
  Receipt Date: 20210927
  Transmission Date: 20211014
  Serious: Yes (Other)
  Sender: FDA-Public Use
  Company Number: PHHY2011CA107359

PATIENT
  Age: 74 Year
  Sex: Male

DRUGS (6)
  1. SANDOSTATIN LAR DEPOT [Suspect]
     Active Substance: OCTREOTIDE ACETATE
     Indication: NEUROENDOCRINE TUMOUR
     Dosage: 30 MG, QMO
     Route: 030
     Dates: start: 20111103
  2. SANDOSTATIN LAR DEPOT [Suspect]
     Active Substance: OCTREOTIDE ACETATE
  3. SANDOSTATIN LAR DEPOT [Suspect]
     Active Substance: OCTREOTIDE ACETATE
  4. WARFARIN [Concomitant]
     Active Substance: WARFARIN
     Dosage: 7 MG, QD
     Route: 065
  5. WARFARIN [Concomitant]
     Active Substance: WARFARIN
     Indication: PRODUCT USED FOR UNKNOWN INDICATION
     Dosage: 10 MG
     Route: 065
  6. WARFARIN [Concomitant]
     Active Substance: WARFARIN
     Dosage: 20 MG (FOR 2 DAYS)
     Route: 065

REACTIONS (11)
  - Blood pressure increased [Unknown]
  - Gastroenteritis viral [Unknown]
  - Dizziness [Recovered/Resolved]
  - Blood pressure diastolic decreased [Unknown]
  - Blood potassium decreased [Unknown]
  - Body temperature decreased [Unknown]
  - Blood pressure systolic increased [Unknown]
  - Heart rate decreased [Unknown]
  - Heart rate irregular [Unknown]
  - Oedema peripheral [Unknown]
  - Cellulitis [Recovering/Resolving]

NARRATIVE: CASE EVENT DATE: 20121026
